FAERS Safety Report 19360185 (Version 1)
Quarter: 2021Q2

REPORT INFORMATION
  Report Type: Spontaneous
  Country: US (occurrence: US)
  Receive Date: 20210601
  Receipt Date: 20210601
  Transmission Date: 20210717
  Serious: No
  Sender: FDA-Public Use
  Company Number: US-PFIZER INC-2021234949

PATIENT
  Age: 61 Year
  Sex: Female
  Weight: 168 kg

DRUGS (1)
  1. PREMARIN [Suspect]
     Active Substance: ESTROGENS, CONJUGATED
     Dosage: 0.5 G (USED IT SPORADICALLY)
     Route: 067
     Dates: start: 202012, end: 202102

REACTIONS (8)
  - Alopecia [Not Recovered/Not Resolved]
  - Hyperhidrosis [Recovered/Resolved]
  - Hair disorder [Not Recovered/Not Resolved]
  - Tearfulness [Unknown]
  - Thyroid disorder [Unknown]
  - Overdose [Recovered/Resolved]
  - Illness [Unknown]
  - Intentional product misuse [Unknown]

NARRATIVE: CASE EVENT DATE: 202012
